APPROVED DRUG PRODUCT: VIGABATRIN
Active Ingredient: VIGABATRIN
Strength: 500MG
Dosage Form/Route: TABLET;ORAL
Application: A214749 | Product #001 | TE Code: AB
Applicant: UPSHER SMITH LABORATORIES LLC
Approved: Jun 29, 2023 | RLD: No | RS: No | Type: RX